FAERS Safety Report 24331559 (Version 1)
Quarter: 2024Q3

REPORT INFORMATION
  Report Type: Spontaneous
  Country: SE (occurrence: SE)
  Receive Date: 20240918
  Receipt Date: 20240918
  Transmission Date: 20241017
  Serious: Yes (Disabling)
  Sender: AMGEN
  Company Number: None

PATIENT
  Age: 46 Year
  Sex: Female
  Weight: 58 kg

DRUGS (1)
  1. AIMOVIG [Suspect]
     Active Substance: ERENUMAB-AOOE
     Indication: Product used for unknown indication
     Dosage: UNK (TOOK IT 2 TIMES DOSE: SECOND DOSE)
     Route: 058

REACTIONS (1)
  - Amenorrhoea [Not Recovered/Not Resolved]

NARRATIVE: CASE EVENT DATE: 20210101
